FAERS Safety Report 4393993-2 (Version None)
Quarter: 2004Q3

REPORT INFORMATION
  Report Type: 
  Country: None (occurrence: None)
  Receive Date: 20040709
  Receipt Date: 20040630
  Transmission Date: 20050211
  Serious: Yes (Hospitalization)
  Sender: FDA-Public Use
  Company Number: IT-MERCK-0406ITA00051

PATIENT
  Age: 68 Year
  Sex: Female

DRUGS (4)
  1. [THERAPY UNSPECIFIED] [Concomitant]
     Indication: PROPHYLAXIS
     Route: 065
     Dates: end: 20031001
  2. BUDESONIDE AND FORMOTEROL FUMARATE [Concomitant]
     Route: 065
     Dates: start: 20020501
  3. DESLORATADINE [Concomitant]
     Route: 048
     Dates: start: 20020501
  4. SINGULAIR [Suspect]
     Indication: ASTHMA
     Route: 048
     Dates: start: 20020501, end: 20040501

REACTIONS (1)
  - ALLERGIC GRANULOMATOUS ANGIITIS [None]
